FAERS Safety Report 17097586 (Version 1)
Quarter: 2019Q4

REPORT INFORMATION
  Report Type: Spontaneous
  Country: US (occurrence: US)
  Receive Date: 20191202
  Receipt Date: 20191202
  Transmission Date: 20200122
  Serious: Yes (Other)
  Sender: FDA-Public Use
  Company Number: US-BAYER-2019-213809

PATIENT
  Age: 81 Year
  Sex: Female

DRUGS (5)
  1. MIRALAX [Suspect]
     Active Substance: POLYETHYLENE GLYCOL 3350
     Indication: CONSTIPATION
     Dosage: 1 DF, QD
     Route: 048
     Dates: start: 2013
  2. MIRALAX [Suspect]
     Active Substance: POLYETHYLENE GLYCOL 3350
     Indication: CONSTIPATION
     Dosage: 1.5 DF, QD
  3. MIRALAX [Suspect]
     Active Substance: POLYETHYLENE GLYCOL 3350
     Indication: CONSTIPATION
     Dosage: 2 DF, QD
  4. KLONOPIN [Concomitant]
     Active Substance: CLONAZEPAM
     Dosage: 1 DF, QD
  5. MIRALAX [Suspect]
     Active Substance: POLYETHYLENE GLYCOL 3350
     Indication: CONSTIPATION
     Dosage: 3 DF, QD

REACTIONS (7)
  - Insomnia [Unknown]
  - Muscle discomfort [Unknown]
  - Intentional product use issue [None]
  - Seizure [None]
  - Abdominal pain [Unknown]
  - Pain [None]
  - Proctalgia [Unknown]

NARRATIVE: CASE EVENT DATE: 2013
